FAERS Safety Report 25385874 (Version 1)
Quarter: 2025Q2

REPORT INFORMATION
  Report Type: Spontaneous
  Country: UA (occurrence: UA)
  Receive Date: 20250602
  Receipt Date: 20250602
  Transmission Date: 20250716
  Serious: Yes (Other)
  Sender: TAKEDA
  Company Number: UA-TAKEDA-2025TUS048507

PATIENT
  Age: 68 Year
  Sex: Male

DRUGS (1)
  1. BRIGATINIB [Suspect]
     Active Substance: BRIGATINIB
     Indication: Non-small cell lung cancer stage IV
     Dosage: 90 MILLIGRAM, QD
     Dates: start: 20250514

REACTIONS (2)
  - Metastasis [Unknown]
  - Rash [Unknown]
